FAERS Safety Report 8098724-0 (Version None)
Quarter: 2012Q1

REPORT INFORMATION
  Report Type: 
  Country: None (occurrence: None)
  Receive Date: 20120131
  Receipt Date: 20120125
  Transmission Date: 20120608
  Serious: Yes (Other)
  Sender: FDA-Public Use
  Company Number: JP-PFIZER INC-2012021120

PATIENT
  Age: 55 Year
  Sex: Female

DRUGS (1)
  1. SOLU-CORTEF [Suspect]

REACTIONS (3)
  - OEDEMA [None]
  - URINARY RETENTION [None]
  - CUSHINGOID [None]
